FAERS Safety Report 13640229 (Version 3)
Quarter: 2017Q3

REPORT INFORMATION
  Report Type: Spontaneous
  Country: JP (occurrence: JP)
  Receive Date: 20170610
  Receipt Date: 20170703
  Transmission Date: 20171127
  Serious: Yes (Death, Other)
  Sender: FDA-Public Use
  Company Number: JP-AMGEN-JPNSP2017088307

PATIENT
  Age: 52 Year
  Sex: Male

DRUGS (9)
  1. ADALAT CC [Concomitant]
     Active Substance: NIFEDIPINE
     Dosage: 60 MG, UNK
  2. FEBURIC [Concomitant]
     Active Substance: FEBUXOSTAT
     Dosage: 20 MG, UNK
  3. ADALAT [Concomitant]
     Active Substance: NIFEDIPINE
     Dosage: 80 MG, UNK
  4. REPATHA [Suspect]
     Active Substance: EVOLOCUMAB
     Indication: HYPERCHOLESTEROLAEMIA
     Dosage: 140 MG, UNK
     Route: 058
     Dates: start: 20161226
  5. CRESTOR [Concomitant]
     Active Substance: ROSUVASTATIN CALCIUM
     Dosage: 20 MG, UNK
  6. ARTIST [Concomitant]
     Active Substance: CARVEDILOL
     Dosage: 20 MG, UNK
  7. ALDOMET [Concomitant]
     Active Substance: METHYLDOPA
     Dosage: 750 MG, UNK
  8. DIART [Concomitant]
     Active Substance: AZOSEMIDE
     Dosage: 40 MG, UNK
  9. CONIEL [Concomitant]
     Active Substance: BENIDIPINE HYDROCHLORIDE
     Dosage: 8 MG, UNK

REACTIONS (1)
  - Death [Fatal]
